FAERS Safety Report 21952659 (Version 5)
Quarter: 2023Q2

REPORT INFORMATION
  Report Type: Spontaneous
  Country: US (occurrence: US)
  Receive Date: 20230203
  Receipt Date: 20230614
  Transmission Date: 20230721
  Serious: Yes (Other)
  Sender: FDA-Public Use
  Company Number: US-MALLINCKRODT-T202300282

PATIENT
  Age: 71 Year
  Sex: Female

DRUGS (3)
  1. CORTICOTROPIN [Suspect]
     Active Substance: CORTICOTROPIN
     Indication: Sarcoidosis
     Dosage: 80 UNITS EVERY 72 HOURS
     Route: 058
     Dates: start: 20211021, end: 2021
  2. CORTICOTROPIN [Suspect]
     Active Substance: CORTICOTROPIN
     Indication: Pulmonary sarcoidosis
     Dosage: 80 UNITS, TWICE A WEEK
     Route: 058
     Dates: start: 20211101
  3. ADCIRCA [Concomitant]
     Active Substance: TADALAFIL
     Indication: Product used for unknown indication
     Dosage: UNKNOWN

REACTIONS (12)
  - Back disorder [Unknown]
  - Spinal operation [Unknown]
  - Myasthenia gravis [Not Recovered/Not Resolved]
  - Sarcoidosis [Unknown]
  - Disease progression [Unknown]
  - Skin burning sensation [Not Recovered/Not Resolved]
  - Ocular hyperaemia [Not Recovered/Not Resolved]
  - Photophobia [Unknown]
  - Eye pain [Not Recovered/Not Resolved]
  - Myalgia [Unknown]
  - Drug ineffective [Not Recovered/Not Resolved]
  - Product use issue [Unknown]

NARRATIVE: CASE EVENT DATE: 20220101
